FAERS Safety Report 6786990-0 (Version None)
Quarter: 2010Q2

REPORT INFORMATION
  Report Type: 
  Country: None (occurrence: None)
  Receive Date: 20100623
  Receipt Date: 20100608
  Transmission Date: 20101027
  Serious: Yes (Hospitalization, Other)
  Sender: FDA-Public Use
  Company Number: PHHY2010IT36703

PATIENT
  Age: 19 Year
  Sex: Male
  Weight: 27 kg

DRUGS (5)
  1. CYCLOSPORINE [Suspect]
     Indication: RENAL TRANSPLANT
  2. MYCOPHENOLATE MOFETIL [Suspect]
     Indication: RENAL TRANSPLANT
  3. STEROIDS NOS [Suspect]
     Indication: RENAL TRANSPLANT
  4. AMOXICILLIN [Concomitant]
     Indication: INFECTION PROPHYLAXIS
  5. CLAVULANATE POTASSIUM [Concomitant]
     Indication: INFECTION PROPHYLAXIS

REACTIONS (10)
  - CORYNEBACTERIUM INFECTION [None]
  - HAEMATURIA [None]
  - HAEMOGLOBIN DECREASED [None]
  - NEPHRECTOMY [None]
  - PYELONEPHRITIS [None]
  - PYREXIA [None]
  - RENAL IMPAIRMENT [None]
  - STENT REMOVAL [None]
  - SURGERY [None]
  - URINARY TRACT OBSTRUCTION [None]
